FAERS Safety Report 4352480-8 (Version None)
Quarter: 2004Q2

REPORT INFORMATION
  Report Type: 
  Country: None (occurrence: None)
  Receive Date: 20040503
  Receipt Date: 20040503
  Transmission Date: 20050107
  Serious: Yes (Death, Hospitalization)
  Sender: FDA-Public Use
  Company Number: None

PATIENT
  Age: 65 Year
  Sex: Male
  Weight: 111.2 kg

DRUGS (2)
  1. CYCLOPHOSPHAMIDE [Suspect]
     Indication: LYMPHOMA
     Dosage: 750 M2 = 1745
     Dates: start: 20040415
  2. DOXORUBICIN HCL [Suspect]
     Indication: LYMPHOMA
     Dosage: 50 M2 = 116
     Dates: start: 20040415

REACTIONS (4)
  - B-CELL LYMPHOMA [None]
  - COMA [None]
  - CONFUSIONAL STATE [None]
  - SEPTIC SHOCK [None]
